FAERS Safety Report 6559985-X (Version None)
Quarter: 2010Q1

REPORT INFORMATION
  Report Type: 
  Country: None (occurrence: None)
  Receive Date: 20100129
  Receipt Date: 20090914
  Transmission Date: 20100710
  Serious: No
  Sender: FDA-Public Use
  Company Number: US-ABBOTT-09P-163-0597500-00

PATIENT
  Sex: Female
  Weight: 77.18 kg

DRUGS (3)
  1. HUMIRA [Suspect]
     Indication: RHEUMATOID ARTHRITIS
     Route: 058
     Dates: start: 20030101, end: 20050101
  2. HUMIRA [Suspect]
     Route: 058
     Dates: start: 20070101
  3. HUMIRA [Suspect]
     Route: 058

REACTIONS (1)
  - BREAKTHROUGH PAIN [None]
